FAERS Safety Report 9050534 (Version 2)
Quarter: 2013Q1

REPORT INFORMATION
  Report Type: Spontaneous
  Country: US (occurrence: US)
  Receive Date: 20130205
  Receipt Date: 20130321
  Transmission Date: 20140127
  Serious: Yes (Death, Hospitalization, Other)
  Sender: FDA-Public Use
  Company Number: US-INCYTE CORPORATION-2012IN001708

PATIENT
  Age: 66 None
  Sex: Female
  Weight: 60.32 kg

DRUGS (3)
  1. JAKAFI [Suspect]
     Indication: MYELOFIBROSIS
     Dosage: 15 MG, BID
     Route: 048
     Dates: start: 20120808, end: 201209
  2. JAKAFI [Suspect]
     Dosage: 15 MG, BID
     Dates: start: 20120912, end: 20130110
  3. AMBIEN [Concomitant]
     Dosage: 10 MG, FREQUENCY NOT SPECIFIED

REACTIONS (6)
  - Respiratory failure [Fatal]
  - Acute respiratory distress syndrome [Fatal]
  - Septic shock [Fatal]
  - Renal failure [None]
  - Pneumonia [Unknown]
  - Thrombocytopenia [Unknown]
